FAERS Safety Report 14919483 (Version 2)
Quarter: 2018Q2

REPORT INFORMATION
  Report Type: Spontaneous
  Country: BG (occurrence: BG)
  Receive Date: 20180521
  Receipt Date: 20180621
  Transmission Date: 20180711
  Serious: Yes (Hospitalization)
  Sender: FDA-Public Use
  Company Number: BG-NOVOPROD-598858

PATIENT
  Age: 20 Year
  Sex: Female
  Weight: 50 kg

DRUGS (3)
  1. TRESIBA [Suspect]
     Active Substance: INSULIN DEGLUDEC
     Dosage: 22 U, QD
     Route: 058
  2. TRESIBA [Suspect]
     Active Substance: INSULIN DEGLUDEC
     Indication: TYPE 1 DIABETES MELLITUS
     Dosage: 22 U, QD
     Route: 058
     Dates: start: 2016
  3. NOVORAPID [Concomitant]
     Active Substance: INSULIN ASPART
     Dosage: 26 U, QD (8U, 10U,8U)
     Dates: start: 2016

REACTIONS (4)
  - Diabetic ketoacidosis [Recovered/Resolved]
  - Product quality issue [Unknown]
  - Drug ineffective [Unknown]
  - Pneumonia [Unknown]

NARRATIVE: CASE EVENT DATE: 201804
